FAERS Safety Report 8963846 (Version 2)
Quarter: 2013Q1

REPORT INFORMATION
  Report Type: Spontaneous
  Country: US (occurrence: US)
  Receive Date: 20121214
  Receipt Date: 20130125
  Transmission Date: 20140127
  Serious: Yes (Hospitalization, Other)
  Sender: FDA-Public Use
  Company Number: US-PFIZER INC-2012315446

PATIENT
  Age: 77 Year
  Sex: Female
  Weight: 58.96 kg

DRUGS (1)
  1. VFEND [Suspect]
     Indication: LUNG DISORDER
     Dosage: 200 MG, 2X/DAY
     Dates: start: 201207

REACTIONS (1)
  - Pneumonia [Recovered/Resolved]
